FAERS Safety Report 8436704-3 (Version None)
Quarter: 2012Q2

REPORT INFORMATION
  Report Type: 
  Country: None (occurrence: None)
  Receive Date: 20120614
  Receipt Date: 20120605
  Transmission Date: 20120825
  Serious: Yes (Hospitalization)
  Sender: FDA-Public Use
  Company Number: US-ASTRAZENECA-2012SE37565

PATIENT
  Sex: Female

DRUGS (4)
  1. PRISTIQ [Suspect]
     Route: 065
  2. SEROQUEL XR [Suspect]
     Route: 048
  3. SEROQUEL XR [Suspect]
     Route: 048
  4. PRISTIQ [Suspect]
     Route: 065

REACTIONS (3)
  - INTENTIONAL DRUG MISUSE [None]
  - URINARY RETENTION [None]
  - BIPOLAR DISORDER [None]
